FAERS Safety Report 6168440-0 (Version None)
Quarter: 2009Q2

REPORT INFORMATION
  Report Type: 
  Country: None (occurrence: None)
  Receive Date: 20090427
  Receipt Date: 20090417
  Transmission Date: 20091009
  Serious: Yes (Hospitalization)
  Sender: FDA-Public Use
  Company Number: A0748623A

PATIENT
  Age: 55 Year
  Sex: Male
  Weight: 131.8 kg

DRUGS (12)
  1. AVANDIA [Suspect]
     Dosage: 8MG TWICE PER DAY
     Route: 048
     Dates: start: 20030101, end: 20070101
  2. METFORMIN HCL [Concomitant]
  3. TRICOR [Concomitant]
  4. AMITRIPTYLINE [Concomitant]
  5. MOBIC [Concomitant]
  6. ALTACE [Concomitant]
  7. AVAPRO [Concomitant]
  8. LIPITOR [Concomitant]
  9. PREVACID [Concomitant]
  10. LIPITOR [Concomitant]
  11. NORVASC [Concomitant]
  12. INSULIN [Concomitant]

REACTIONS (4)
  - CARDIAC DISORDER [None]
  - CARDIAC FAILURE CONGESTIVE [None]
  - CEREBROVASCULAR ACCIDENT [None]
  - MYOCARDIAL INFARCTION [None]
